FAERS Safety Report 4718357-0 (Version None)
Quarter: 2005Q3

REPORT INFORMATION
  Report Type: 
  Country: None (occurrence: None)
  Receive Date: 20050720
  Receipt Date: 20050707
  Transmission Date: 20060218
  Serious: Yes (Life-Threatening, Hospitalization)
  Sender: FDA-Public Use
  Company Number: ES-AMGEN-UK142019

PATIENT
  Sex: Female
  Weight: 66 kg

DRUGS (17)
  1. CINACALCET [Suspect]
     Indication: HYPERPARATHYROIDISM SECONDARY
     Route: 048
     Dates: start: 20050220, end: 20050530
  2. PARIET [Concomitant]
     Route: 065
  3. NPH INSULIN [Concomitant]
     Route: 065
  4. PEPSAMAR [Concomitant]
     Route: 048
  5. ACFOL [Concomitant]
     Route: 048
  6. ROHIPNOL [Concomitant]
     Route: 048
  7. BACTROBAN [Concomitant]
     Route: 065
  8. DILTIAZEM [Concomitant]
     Route: 048
  9. CLOPIDOGREL BISULFATE [Concomitant]
     Route: 048
  10. NITROGLYCERIN [Concomitant]
     Route: 062
  11. CALCIUM CARBONATE [Concomitant]
     Route: 048
  12. CARVEDILOL [Concomitant]
     Route: 065
  13. PRAVASTATIN [Concomitant]
     Route: 048
  14. SEREVENT [Concomitant]
     Route: 055
  15. ETALPHA [Concomitant]
     Route: 042
     Dates: start: 20030101
  16. FLUIMUCIL [Concomitant]
     Route: 065
  17. FLUTICASONE PROPIONATE [Concomitant]
     Route: 055

REACTIONS (12)
  - APPENDICITIS [None]
  - ARRHYTHMIA [None]
  - BACK PAIN [None]
  - CARDIOGENIC SHOCK [None]
  - CYANOSIS [None]
  - DIALYSIS [None]
  - DYSPNOEA [None]
  - HEART RATE DECREASED [None]
  - HYPERGLYCAEMIA [None]
  - HYPERKALAEMIA [None]
  - HYPOCALCAEMIA [None]
  - INSOMNIA [None]
